FAERS Safety Report 18125088 (Version 1)
Quarter: 2020Q3

REPORT INFORMATION
  Report Type: Spontaneous
  Country: ES (occurrence: ES)
  Receive Date: 20200807
  Receipt Date: 20200807
  Transmission Date: 20201103
  Serious: Yes (Life-Threatening, Other)
  Sender: FDA-Public Use
  Company Number: ES-PFIZER INC-2020297476

PATIENT
  Age: 41 Year
  Sex: Male

DRUGS (2)
  1. METAMIZOLE [Suspect]
     Active Substance: METAMIZOLE
     Dosage: UNK
     Route: 042
     Dates: start: 20200706
  2. VANCOMICINA PFIZER [Suspect]
     Active Substance: VANCOMYCIN HYDROCHLORIDE
     Indication: STAPHYLOCOCCAL INFECTION
     Dosage: 2 G, DAILY
     Route: 042
     Dates: start: 20200706, end: 20200706

REACTIONS (1)
  - Anaphylactic shock [Recovered/Resolved]

NARRATIVE: CASE EVENT DATE: 20200706
